FAERS Safety Report 7058794-5 (Version None)
Quarter: 2010Q4

REPORT INFORMATION
  Report Type: 
  Country: None (occurrence: None)
  Receive Date: 20101022
  Receipt Date: 20101018
  Transmission Date: 20110411
  Serious: Yes (Other)
  Sender: FDA-Public Use
  Company Number: GB-WYE-G06828210

PATIENT
  Age: 49 Year
  Sex: Female

DRUGS (1)
  1. PREMIQUE [Suspect]
     Indication: HORMONE REPLACEMENT THERAPY
     Dosage: 0.625MG FREQUENCY UNKNOWN
     Dates: start: 20090801

REACTIONS (8)
  - ALOPECIA [None]
  - ARTHRALGIA [None]
  - DEPRESSION [None]
  - HOT FLUSH [None]
  - MALAISE [None]
  - MOOD SWINGS [None]
  - PRODUCT NAME CONFUSION [None]
  - VISUAL ACUITY REDUCED [None]
